FAERS Safety Report 25129656 (Version 1)
Quarter: 2025Q1

REPORT INFORMATION
  Report Type: Spontaneous
  Country: US (occurrence: US)
  Receive Date: 20250327
  Receipt Date: 20250327
  Transmission Date: 20250409
  Serious: Yes (Hospitalization, Congenital Anomaly, Other)
  Sender: PFIZER
  Company Number: US-PFIZER INC-PV202500026877

PATIENT
  Age: 1 Month
  Sex: Female
  Weight: 2.284 kg

DRUGS (1)
  1. NURTEC ODT [Suspect]
     Active Substance: RIMEGEPANT SULFATE
     Indication: Migraine
     Dosage: 75 MG, DAILY(THEN REDUCED TO EVERY OTHER DAY ONCE MIGRAINE FREQUENCY REDUCED)
     Route: 064
     Dates: start: 20240610, end: 20250129

REACTIONS (4)
  - Maternal exposure during pregnancy [Unknown]
  - Blood glucose decreased [Unknown]
  - Foetal distress syndrome [Recovered/Resolved]
  - Small for dates baby [Unknown]

NARRATIVE: CASE EVENT DATE: 20240610
